FAERS Safety Report 26120197 (Version 1)
Quarter: 2025Q4

REPORT INFORMATION
  Report Type: Report from Study
  Country: IN (occurrence: IN)
  Receive Date: 20251204
  Receipt Date: 20251204
  Transmission Date: 20260118
  Serious: Yes (Other)
  Sender: ROCHE
  Company Number: IN-ROCHE-10000446989

PATIENT

DRUGS (2)
  1. BEVACIZUMAB [Suspect]
     Active Substance: BEVACIZUMAB
     Indication: Neovascular age-related macular degeneration
     Dosage: AT FIRST 0.05 ML OF 1.25 MG IVB IS INJECTED THROUGH THE PARS PLANA USING A 30G CANNULA FOLLOWED BY 0
     Route: 050
  2. BEVACIZUMAB [Suspect]
     Active Substance: BEVACIZUMAB
     Indication: Retinal haemorrhage

REACTIONS (4)
  - Off label use [Unknown]
  - Off label use [Unknown]
  - Glaucoma [Unknown]
  - Intraocular pressure increased [Unknown]
